FAERS Safety Report 7401326-X (Version None)
Quarter: 2011Q2

REPORT INFORMATION
  Report Type: 
  Country: None (occurrence: None)
  Receive Date: 20110407
  Receipt Date: 20110331
  Transmission Date: 20111010
  Serious: Yes (Other)
  Sender: FDA-Public Use
  Company Number: US-AMGEN-USASP2011009839

PATIENT
  Age: 29 Year
  Sex: Female

DRUGS (1)
  1. ENBREL [Suspect]
     Indication: ANKYLOSING SPONDYLITIS
     Dosage: 50 MG, QWK
     Dates: start: 20110103

REACTIONS (10)
  - LACRIMATION INCREASED [None]
  - PRESYNCOPE [None]
  - TINNITUS [None]
  - DRUG HYPERSENSITIVITY [None]
  - BRONCHITIS [None]
  - INJECTION SITE HAEMORRHAGE [None]
  - INJECTION SITE PRURITUS [None]
  - HYPERHIDROSIS [None]
  - FEELING HOT [None]
  - INJECTION SITE URTICARIA [None]
